FAERS Safety Report 10234507 (Version 2)
Quarter: 2014Q3

REPORT INFORMATION
  Report Type: Spontaneous
  Country: GB (occurrence: GB)
  Receive Date: 20140613
  Receipt Date: 20140926
  Transmission Date: 20150326
  Serious: Yes (Death, Hospitalization)
  Sender: FDA-Public Use
  Company Number: GB-ROCHE-1413422

PATIENT
  Age: 49 Year
  Sex: Male

DRUGS (4)
  1. PEGINTERFERON ALFA-2A [Suspect]
     Active Substance: PEGINTERFERON ALFA-2A
     Indication: CHRONIC HEPATITIS C
     Dosage: LAST DOSE PRIOR TO SERIOUS ADVERSE EVENT: 09/MAY/2014
     Route: 058
     Dates: start: 20140404, end: 20140509
  2. SOFOSBUVIR [Suspect]
     Active Substance: SOFOSBUVIR
     Indication: CHRONIC HEPATITIS C
     Dosage: LAST DOSE PRIOR TO SERIOUS ADVERSE EVENT: 09/MAY/2014
     Route: 048
     Dates: start: 20140404
  3. METHADONE [Concomitant]
     Active Substance: METHADONE HYDROCHLORIDE
     Route: 065
  4. RIBAVIRIN. [Suspect]
     Active Substance: RIBAVIRIN
     Indication: CHRONIC HEPATITIS C
     Dosage: LAST DOSE PRIOR TO SERIOUS ADVERSE EVENT: 09/MAY/2014
     Route: 048
     Dates: start: 20140404, end: 20140509

REACTIONS (1)
  - Hepatic encephalopathy [Fatal]

NARRATIVE: CASE EVENT DATE: 20140510
